FAERS Safety Report 13023101 (Version 1)
Quarter: 2016Q4

REPORT INFORMATION
  Report Type: Spontaneous
  Country: US (occurrence: US)
  Receive Date: 20161213
  Receipt Date: 20161213
  Transmission Date: 20170207
  Serious: No
  Sender: FDA-Public Use
  Company Number: US-TEVA-668765USA

PATIENT
  Sex: Female

DRUGS (1)
  1. AZITHROMYCIN ANHYDROUS. [Suspect]
     Active Substance: AZITHROMYCIN ANHYDROUS
     Dosage: 200 MG / 5 ML
     Route: 048

REACTIONS (8)
  - Product deposit [Unknown]
  - Product taste abnormal [Unknown]
  - Dysgeusia [Recovered/Resolved]
  - Throat irritation [Recovered/Resolved]
  - Product preparation error [Unknown]
  - Product reconstitution issue [Unknown]
  - Product difficult to swallow [Unknown]
  - Screaming [Recovered/Resolved]
